FAERS Safety Report 7554046-5 (Version None)
Quarter: 2011Q2

REPORT INFORMATION
  Report Type: 
  Country: None (occurrence: None)
  Receive Date: 20110614
  Receipt Date: 20110614
  Transmission Date: 20111010
  Serious: No
  Sender: FDA-Public Use
  Company Number: None

PATIENT
  Sex: Female
  Weight: 84.8226 kg

DRUGS (1)
  1. SUBOXONE [Suspect]
     Indication: DRUG DEPENDENCE
     Dosage: 8/2 MG BID SL
     Route: 060
     Dates: start: 20110531, end: 20110606

REACTIONS (6)
  - HYPERHIDROSIS [None]
  - THROAT IRRITATION [None]
  - RASH [None]
  - SIMILAR REACTION ON PREVIOUS EXPOSURE TO DRUG [None]
  - FLUSHING [None]
  - HEADACHE [None]
